FAERS Safety Report 4382506-7 (Version None)
Quarter: 2004Q2

REPORT INFORMATION
  Report Type: 
  Country: None (occurrence: None)
  Receive Date: 20040617
  Receipt Date: 20040602
  Transmission Date: 20050107
  Serious: Yes (Hospitalization)
  Sender: FDA-Public Use
  Company Number: K200400826

PATIENT
  Sex: Male

DRUGS (2)
  1. ALTACE [Suspect]
     Dosage: ORAL
     Route: 048
     Dates: start: 19990101, end: 20040501
  2. INSULIN [Concomitant]

REACTIONS (6)
  - BLOOD CREATINE PHOSPHOKINASE INCREASED [None]
  - BLOOD SMEAR TEST ABNORMAL [None]
  - EOSINOPHILIA [None]
  - MONOCYTE COUNT ABNORMAL [None]
  - MUSCLE CRAMP [None]
  - SEPSIS [None]
